FAERS Safety Report 4664154-4 (Version None)
Quarter: 2005Q2

REPORT INFORMATION
  Report Type: 
  Country: None (occurrence: None)
  Receive Date: 20050516
  Receipt Date: 20050502
  Transmission Date: 20051028
  Serious: Yes (Other)
  Sender: FDA-Public Use
  Company Number: 233868K03USA

PATIENT
  Age: 39 Year
  Sex: Female

DRUGS (1)
  1. REBIF [Suspect]
     Indication: MULTIPLE SCLEROSIS
     Dosage: 44 MCG
     Dates: start: 20040101

REACTIONS (6)
  - DRUG EXPOSURE DURING PREGNANCY [None]
  - LABOUR INDUCTION [None]
  - PRE-ECLAMPSIA [None]
  - PREGNANCY [None]
  - PREMATURE BABY [None]
  - SWELLING [None]
